FAERS Safety Report 19808726 (Version 1)
Quarter: 2021Q3

REPORT INFORMATION
  Report Type: Spontaneous
  Country: US (occurrence: US)
  Receive Date: 20210908
  Receipt Date: 20210908
  Transmission Date: 20211014
  Serious: Yes (Disabling, Other)
  Sender: FDA-Public Use
  Company Number: None

PATIENT
  Age: 70 Year
  Sex: Female
  Weight: 87.75 kg

DRUGS (14)
  1. CALCIUM/MAGNESIUM [Concomitant]
     Active Substance: CALCIUM\MAGNESIUM
  2. ACETAMINOPHEN. [Concomitant]
     Active Substance: ACETAMINOPHEN
  3. VITAMIN E [Concomitant]
     Active Substance: .ALPHA.-TOCOPHEROL
  4. NABUMETONE 500 MG. [Suspect]
     Active Substance: NABUMETONE
     Indication: INTERVERTEBRAL DISC DEGENERATION
     Dosage: ?          QUANTITY:1 TABLET(S);?
     Route: 048
     Dates: start: 20210824, end: 20210907
  5. GABAPENTIN. [Concomitant]
     Active Substance: GABAPENTIN
  6. VITAMIN D [Concomitant]
     Active Substance: VITAMIN D NOS
  7. VITAMIN C [Concomitant]
     Active Substance: ASCORBIC ACID
  8. NABUMETONE 500 MG. [Suspect]
     Active Substance: NABUMETONE
     Indication: FIBROMYALGIA
     Dosage: ?          QUANTITY:1 TABLET(S);?
     Route: 048
     Dates: start: 20210824, end: 20210907
  9. FLUTICASONE. [Concomitant]
     Active Substance: FLUTICASONE
  10. METROPOLOL [Concomitant]
     Active Substance: METOPROLOL
  11. COENZYME Q10 [Concomitant]
     Active Substance: DIETARY SUPPLEMENT\UBIDECARENONE
  12. NABUMETONE 500 MG. [Suspect]
     Active Substance: NABUMETONE
     Indication: OSTEOARTHRITIS
     Dosage: ?          QUANTITY:1 TABLET(S);?
     Route: 048
     Dates: start: 20210824, end: 20210907
  13. DULOXETINE. [Concomitant]
     Active Substance: DULOXETINE
  14. ALPHA LIPOIC SUSTAIN [Concomitant]

REACTIONS (8)
  - Product substitution issue [None]
  - Anorectal disorder [None]
  - Product formulation issue [None]
  - Sexual dysfunction [None]
  - Drug ineffective [None]
  - Suspected product quality issue [None]
  - Constipation [None]
  - Irritable bowel syndrome [None]

NARRATIVE: CASE EVENT DATE: 20210907
